FAERS Safety Report 5096859-8 (Version None)
Quarter: 2006Q3

REPORT INFORMATION
  Report Type: 
  Country: None (occurrence: None)
  Receive Date: 20060831
  Receipt Date: 20060831
  Transmission Date: 20061208
  Serious: Yes (Hospitalization)
  Sender: FDA-Public Use
  Company Number: None

PATIENT
  Age: 62 Year
  Sex: Female
  Weight: 66.9 kg

DRUGS (2)
  1. CYCLOPHOSPHAMIDE [Suspect]
     Dosage: 1044 MG
     Dates: end: 20060821
  2. DOXORUBICIN HYDROCHLORIDE [Suspect]
     Dosage: 104 MG
     Dates: end: 20060821

REACTIONS (3)
  - HEADACHE [None]
  - NEUTROPENIA [None]
  - PYREXIA [None]
